APPROVED DRUG PRODUCT: REQUIP XL
Active Ingredient: ROPINIROLE HYDROCHLORIDE
Strength: EQ 4MG BASE **Federal Register determination that product was not discontinued or withdrawn for safety or effectiveness reasons**
Dosage Form/Route: TABLET, EXTENDED RELEASE;ORAL
Application: N022008 | Product #003
Applicant: GLAXOSMITHKLINE LLC
Approved: Jun 13, 2008 | RLD: Yes | RS: No | Type: DISCN